FAERS Safety Report 7691714-9 (Version None)
Quarter: 2011Q3

REPORT INFORMATION
  Report Type: 
  Country: None (occurrence: None)
  Receive Date: 20110818
  Receipt Date: 20110606
  Transmission Date: 20111222
  Serious: Yes (Other)
  Sender: FDA-Public Use
  Company Number: CA-GLAXOSMITHKLINE-A0930476A

PATIENT
  Sex: Female

DRUGS (10)
  1. LEVOTHYROXINE SODIUM [Concomitant]
  2. VITAMIN B6 [Concomitant]
  3. CALCIUM CARBONATE [Concomitant]
  4. NEXIUM [Concomitant]
  5. VITAMIN D [Concomitant]
  6. AMLODIPINE [Concomitant]
  7. PULMICORT [Concomitant]
  8. CAPECITABINE [Concomitant]
     Indication: BREAST CANCER METASTATIC
     Dosage: 1800MG TWICE PER DAY
     Route: 048
     Dates: start: 20110501, end: 20110804
  9. TYKERB [Suspect]
     Indication: BREAST CANCER METASTATIC
     Dosage: 1250MG PER DAY
     Route: 048
     Dates: start: 20110501, end: 20110804
  10. COZAAR [Concomitant]

REACTIONS (3)
  - METASTASES TO LUNG [None]
  - DIARRHOEA [None]
  - COUGH [None]
